FAERS Safety Report 8520848-1 (Version None)
Quarter: 2012Q2

REPORT INFORMATION
  Report Type: 
  Country: None (occurrence: None)
  Receive Date: 20120409
  Receipt Date: 20120117
  Transmission Date: 20120825
  Serious: Yes (Other)
  Sender: FDA-Public Use
  Company Number: PHEH2012US001559

PATIENT
  Age: 58 Year
  Sex: Male

DRUGS (11)
  1. VALTURNA [Suspect]
     Dosage: 1 DF(300/320 MG), PER DAY (300/320 MG) HALF IN THE AM AND HALF IN THE PM 300/320 MG
  2. HYDROCHLOROTHIAZIDE [Concomitant]
  3. GEMFIBROZIL [Concomitant]
  4. LISINOPRIL/HCTZ (HYDROCHLOROTHIAZIDE, LISINOPRIL) [Concomitant]
  5. LISINOPRIL [Concomitant]
  6. WARFARIN SODIUM [Concomitant]
  7. METFFORMIN HYDROCHLORIDE [Concomitant]
  8. GLIMEPIRIDE [Concomitant]
  9. SIMVASTATIN [Concomitant]
  10. VITAMIN D [Concomitant]
  11. ZOLPIDEM [Concomitant]

REACTIONS (5)
  - PROTEINURIA [None]
  - LETHARGY [None]
  - WRONG TECHNIQUE IN DRUG USAGE PROCESS [None]
  - DYSURIA [None]
  - BLOOD CREATININE INCREASED [None]
